FAERS Safety Report 9127067 (Version 1)
Quarter: 2013Q1

REPORT INFORMATION
  Report Type: Spontaneous
  Country: AU (occurrence: AU)
  Receive Date: 20130122
  Receipt Date: 20130122
  Transmission Date: 20140127
  Serious: Yes (Other)
  Sender: FDA-Public Use
  Company Number: AU-BAYER-2013-006617

PATIENT
  Age: 45 Year
  Sex: Male

DRUGS (5)
  1. ACETYLSALICYLIC ACID({=100 MG) [Suspect]
     Indication: BRAIN STEM INFARCTION
  2. WARFARIN [Suspect]
  3. PERINDOPRIL [Concomitant]
  4. METOPROLOL [Concomitant]
  5. ATORVASTATIN [Concomitant]

REACTIONS (2)
  - Acute myocardial infarction [None]
  - Drug ineffective [None]
